FAERS Safety Report 13625413 (Version 3)
Quarter: 2017Q4

REPORT INFORMATION
  Report Type: Spontaneous
  Country: US (occurrence: US)
  Receive Date: 20170607
  Receipt Date: 20171027
  Transmission Date: 20180320
  Serious: Yes (Other)
  Sender: FDA-Public Use
  Company Number: US-SA-2017SA018607

PATIENT
  Age: 41 Year
  Sex: Female
  Weight: 74.84 kg

DRUGS (4)
  1. ATENOLOL. [Concomitant]
     Active Substance: ATENOLOL
     Indication: BLOOD PRESSURE MEASUREMENT
     Route: 065
  2. TAXOTERE [Suspect]
     Active Substance: DOCETAXEL
     Indication: BREAST CANCER
     Route: 051
     Dates: start: 20060413, end: 20060413
  3. TAXOTERE [Suspect]
     Active Substance: DOCETAXEL
     Indication: BREAST CANCER
     Route: 051
     Dates: start: 20060209, end: 20060209
  4. NEOSAR [Concomitant]
     Active Substance: CYCLOPHOSPHAMIDE

REACTIONS (8)
  - Impaired quality of life [Unknown]
  - Nail disorder [Unknown]
  - Tooth loss [Unknown]
  - Emotional distress [Unknown]
  - Psychological trauma [Unknown]
  - Alopecia [Not Recovered/Not Resolved]
  - Pain [Unknown]
  - Anxiety [Unknown]

NARRATIVE: CASE EVENT DATE: 200611
